FAERS Safety Report 7115334-X (Version None)
Quarter: 2010Q4

REPORT INFORMATION
  Report Type: 
  Country: None (occurrence: None)
  Receive Date: 20101122
  Receipt Date: 20101115
  Transmission Date: 20110411
  Serious: Yes (Hospitalization)
  Sender: FDA-Public Use
  Company Number: US-TYCO HEALTHCARE/MALLINCKRODT-T201002289

PATIENT
  Age: 57 Year
  Sex: Male

DRUGS (1)
  1. MORPHINE [Suspect]
     Indication: BACK PAIN
     Dosage: UNK
     Route: 037
     Dates: end: 20101001

REACTIONS (2)
  - DEVICE OCCLUSION [None]
  - MENINGITIS STREPTOCOCCAL [None]
